FAERS Safety Report 17115512 (Version 5)
Quarter: 2020Q2

REPORT INFORMATION
  Report Type: Report from Study
  Country: US (occurrence: US)
  Receive Date: 20191205
  Receipt Date: 20200615
  Transmission Date: 20200713
  Serious: Yes (Other)
  Sender: FDA-Public Use
  Company Number: NVSC2019US059893

PATIENT
  Age: 62 Year
  Sex: Male

DRUGS (1)
  1. COSENTYX [Suspect]
     Active Substance: SECUKINUMAB
     Indication: PSORIASIS
     Dosage: 300 MG, OTHER (EVERY 28 DAYS)
     Route: 058
     Dates: start: 20190829

REACTIONS (7)
  - Product dose omission [Unknown]
  - Wound [Unknown]
  - Dry skin [Unknown]
  - Pruritus [Unknown]
  - Skin fissures [Unknown]
  - Skin haemorrhage [Unknown]
  - Tinea pedis [Unknown]

NARRATIVE: CASE EVENT DATE: 20191106
